FAERS Safety Report 20813237 (Version 1)
Quarter: 2022Q2

REPORT INFORMATION
  Report Type: Spontaneous
  Country: IT (occurrence: IT)
  Receive Date: 20220511
  Receipt Date: 20220511
  Transmission Date: 20220721
  Serious: Yes (Other)
  Sender: FDA-Public Use
  Company Number: IT-ELI_LILLY_AND_COMPANY-IT202205001389

PATIENT
  Age: 60 Year
  Sex: Female

DRUGS (1)
  1. SELPERCATINIB [Suspect]
     Active Substance: SELPERCATINIB
     Indication: Lung adenocarcinoma
     Dosage: 160 MG, BID
     Dates: start: 202201

REACTIONS (3)
  - Pulmonary embolism [Unknown]
  - Hypertransaminasaemia [Unknown]
  - Respiratory disorder [Unknown]
